FAERS Safety Report 23853708 (Version 5)
Quarter: 2024Q4

REPORT INFORMATION
  Report Type: Report from Study
  Country: US (occurrence: US)
  Receive Date: 20240514
  Receipt Date: 20241220
  Transmission Date: 20250114
  Serious: Yes (Hospitalization, Other)
  Sender: AUROBINDO
  Company Number: US-AUROBINDO-AUR-APL-2024-022378

PATIENT
  Age: 72 Year
  Sex: Female
  Weight: 54.1 kg

DRUGS (93)
  1. BELEODAQ [Suspect]
     Active Substance: BELINOSTAT
     Indication: Angioimmunoblastic T-cell lymphoma
     Dosage: 600 MILLIGRAM/SQ. METER
     Route: 065
     Dates: start: 20240413, end: 20240413
  2. BELEODAQ [Suspect]
     Active Substance: BELINOSTAT
     Dosage: 600 MILLIGRAM/SQ. METER
     Route: 042
     Dates: start: 20240513, end: 20240513
  3. BELEODAQ [Suspect]
     Active Substance: BELINOSTAT
     Dosage: 600 MILLIGRAM/SQ. METER
     Route: 042
     Dates: start: 20240514, end: 20240514
  4. BELEODAQ [Suspect]
     Active Substance: BELINOSTAT
     Dosage: 600 MILLIGRAM/SQ. METER
     Route: 042
     Dates: start: 20240515, end: 20240515
  5. BELEODAQ [Suspect]
     Active Substance: BELINOSTAT
     Dosage: 600 MILLIGRAM/SQ. METER
     Route: 042
     Dates: start: 20240516, end: 20240516
  6. BELEODAQ [Suspect]
     Active Substance: BELINOSTAT
     Dosage: 600 MILLIGRAM/SQ. METER
     Route: 042
     Dates: start: 20240517, end: 20240517
  7. BELEODAQ [Suspect]
     Active Substance: BELINOSTAT
     Dosage: 600 MILLIGRAM/SQ. METER
     Route: 042
     Dates: start: 20240604, end: 20240604
  8. BELEODAQ [Suspect]
     Active Substance: BELINOSTAT
     Dosage: 600 MILLIGRAM/SQ. METER
     Route: 042
     Dates: start: 20240605, end: 20240605
  9. BELEODAQ [Suspect]
     Active Substance: BELINOSTAT
     Dosage: 600 MILLIGRAM/SQ. METER
     Route: 042
     Dates: start: 20240606, end: 20240606
  10. BELEODAQ [Suspect]
     Active Substance: BELINOSTAT
     Dosage: 600 MILLIGRAM/SQ. METER
     Route: 042
     Dates: start: 20240607, end: 20240607
  11. BELEODAQ [Suspect]
     Active Substance: BELINOSTAT
     Dosage: 600 MILLIGRAM/SQ. METER
     Route: 042
     Dates: start: 20240608, end: 20240608
  12. BELEODAQ [Suspect]
     Active Substance: BELINOSTAT
     Dosage: 600 MILLIGRAM/SQ. METER
     Route: 042
     Dates: start: 20240624, end: 20240624
  13. BELEODAQ [Suspect]
     Active Substance: BELINOSTAT
     Dosage: 600 MILLIGRAM/SQ. METER
     Route: 042
     Dates: start: 20240625, end: 20240625
  14. BELEODAQ [Suspect]
     Active Substance: BELINOSTAT
     Dosage: 600 MILLIGRAM/SQ. METER
     Route: 042
     Dates: start: 20240625, end: 20240625
  15. BELEODAQ [Suspect]
     Active Substance: BELINOSTAT
     Dosage: 600 MILLIGRAM/SQ. METER
     Route: 042
     Dates: start: 20240626, end: 20240626
  16. BELEODAQ [Suspect]
     Active Substance: BELINOSTAT
     Dosage: 600 MILLIGRAM/SQ. METER
     Route: 042
     Dates: start: 20240627, end: 20240627
  17. BELEODAQ [Suspect]
     Active Substance: BELINOSTAT
     Dosage: 600 MILLIGRAM/SQ. METER
     Route: 042
     Dates: start: 20240628, end: 20240628
  18. BELEODAQ [Suspect]
     Active Substance: BELINOSTAT
     Dosage: 600 MILLIGRAM/SQ. METER
     Route: 042
     Dates: start: 20240716, end: 20240716
  19. BELEODAQ [Suspect]
     Active Substance: BELINOSTAT
     Dosage: 600 MILLIGRAM/SQ. METER
     Route: 042
     Dates: start: 20240717, end: 20240717
  20. BELEODAQ [Suspect]
     Active Substance: BELINOSTAT
     Dosage: 600 MILLIGRAM/SQ. METER
     Route: 042
     Dates: start: 20240718, end: 20240718
  21. BELEODAQ [Suspect]
     Active Substance: BELINOSTAT
     Dosage: 600 MILLIGRAM/SQ. METER
     Route: 042
     Dates: start: 20240719, end: 20240719
  22. BELEODAQ [Suspect]
     Active Substance: BELINOSTAT
     Dosage: 600 MILLIGRAM/SQ. METER
     Route: 042
     Dates: start: 20240720, end: 20240720
  23. BELEODAQ [Suspect]
     Active Substance: BELINOSTAT
     Dosage: 600 MILLIGRAM/SQ. METER
     Route: 042
     Dates: start: 20240806, end: 20240806
  24. BELEODAQ [Suspect]
     Active Substance: BELINOSTAT
     Dosage: 600 MILLIGRAM/SQ. METER
     Route: 042
     Dates: start: 20240807, end: 20240807
  25. BELEODAQ [Suspect]
     Active Substance: BELINOSTAT
     Dosage: 600 MILLIGRAM/SQ. METER
     Route: 042
     Dates: start: 20240808, end: 20240808
  26. BELEODAQ [Suspect]
     Active Substance: BELINOSTAT
     Dosage: 600 MILLIGRAM/SQ. METER
     Route: 042
     Dates: start: 20240809, end: 20240809
  27. BELEODAQ [Suspect]
     Active Substance: BELINOSTAT
     Dosage: 600 MILLIGRAM/SQ. METER
     Route: 042
     Dates: start: 20240810, end: 20240810
  28. BELEODAQ [Suspect]
     Active Substance: BELINOSTAT
     Dosage: 600 MILLIGRAM/SQ. METER
     Route: 042
     Dates: start: 20240827, end: 20240827
  29. BELEODAQ [Suspect]
     Active Substance: BELINOSTAT
     Dosage: 600 MILLIGRAM/SQ. METER
     Route: 042
     Dates: start: 20240828, end: 20240828
  30. BELEODAQ [Suspect]
     Active Substance: BELINOSTAT
     Dosage: 600 MILLIGRAM/SQ. METER
     Route: 042
     Dates: start: 20240829, end: 20240829
  31. BELEODAQ [Suspect]
     Active Substance: BELINOSTAT
     Dosage: 600 MILLIGRAM/SQ. METER
     Route: 042
     Dates: start: 20240831, end: 20240831
  32. CYCLOPHOSPHAMIDE [Suspect]
     Active Substance: CYCLOPHOSPHAMIDE
     Indication: Peripheral T-cell lymphoma unspecified
     Dosage: 750 MILLIGRAM/SQ. METER
     Route: 065
     Dates: start: 20240413, end: 20240413
  33. CYCLOPHOSPHAMIDE [Suspect]
     Active Substance: CYCLOPHOSPHAMIDE
     Indication: Angioimmunoblastic T-cell lymphoma
     Dosage: 750 MILLIGRAM/SQ. METER
     Route: 042
     Dates: start: 20240513, end: 20240513
  34. CYCLOPHOSPHAMIDE [Suspect]
     Active Substance: CYCLOPHOSPHAMIDE
     Dosage: 750 MILLIGRAM/SQ. METER
     Route: 042
     Dates: start: 20240604, end: 20240604
  35. CYCLOPHOSPHAMIDE [Suspect]
     Active Substance: CYCLOPHOSPHAMIDE
     Dosage: 750 MILLIGRAM/SQ. METER
     Route: 042
     Dates: start: 20240624, end: 20240624
  36. CYCLOPHOSPHAMIDE [Suspect]
     Active Substance: CYCLOPHOSPHAMIDE
     Dosage: 750 MILLIGRAM/SQ. METER
     Route: 042
     Dates: start: 20240716, end: 20240716
  37. CYCLOPHOSPHAMIDE [Suspect]
     Active Substance: CYCLOPHOSPHAMIDE
     Dosage: 750 MILLIGRAM/SQ. METER
     Route: 042
     Dates: start: 20240806, end: 20240806
  38. PREDNISONE [Suspect]
     Active Substance: PREDNISONE
     Indication: Angioimmunoblastic T-cell lymphoma
     Dosage: 100 MILLIGRAM
     Route: 065
     Dates: start: 20240413
  39. PREDNISONE [Suspect]
     Active Substance: PREDNISONE
     Dosage: 100 MILLIGRAM
     Route: 048
     Dates: start: 20240513
  40. PREDNISONE [Suspect]
     Active Substance: PREDNISONE
     Dosage: 100 MILLIGRAM
     Route: 048
     Dates: start: 20240514
  41. PREDNISONE [Suspect]
     Active Substance: PREDNISONE
     Dosage: 100 MILLIGRAM
     Route: 048
     Dates: start: 20240515
  42. PREDNISONE [Suspect]
     Active Substance: PREDNISONE
     Dosage: 100 MILLIGRAM
     Route: 048
     Dates: start: 20240516
  43. PREDNISONE [Suspect]
     Active Substance: PREDNISONE
     Dosage: 100 MILLIGRAM
     Route: 048
     Dates: start: 20240517
  44. PREDNISONE [Suspect]
     Active Substance: PREDNISONE
     Dosage: 100 MILLIGRAM
     Route: 048
     Dates: start: 20240604
  45. PREDNISONE [Suspect]
     Active Substance: PREDNISONE
     Dosage: 100 MILLIGRAM
     Route: 048
     Dates: start: 20240605
  46. PREDNISONE [Suspect]
     Active Substance: PREDNISONE
     Dosage: 100 MILLIGRAM
     Route: 048
     Dates: start: 20240606
  47. PREDNISONE [Suspect]
     Active Substance: PREDNISONE
     Dosage: 100 MILLIGRAM
     Route: 048
     Dates: start: 20240607
  48. PREDNISONE [Suspect]
     Active Substance: PREDNISONE
     Dosage: 100 MILLIGRAM
     Route: 048
     Dates: start: 20240608
  49. PREDNISONE [Suspect]
     Active Substance: PREDNISONE
     Dosage: 100 MILLIGRAM
     Route: 048
     Dates: start: 20240624
  50. PREDNISONE [Suspect]
     Active Substance: PREDNISONE
     Dosage: 100 MILLIGRAM
     Route: 048
     Dates: start: 20240625
  51. PREDNISONE [Suspect]
     Active Substance: PREDNISONE
     Dosage: 100 MILLIGRAM
     Route: 048
     Dates: start: 20240626
  52. PREDNISONE [Suspect]
     Active Substance: PREDNISONE
     Dosage: 100 MILLIGRAM
     Route: 048
     Dates: start: 20240627
  53. PREDNISONE [Suspect]
     Active Substance: PREDNISONE
     Dosage: 100 MILLIGRAM
     Route: 048
     Dates: start: 20240628
  54. PREDNISONE [Suspect]
     Active Substance: PREDNISONE
     Dosage: 100 MILLIGRAM
     Route: 048
     Dates: start: 20240716
  55. PREDNISONE [Suspect]
     Active Substance: PREDNISONE
     Dosage: 100 MILLIGRAM
     Route: 048
     Dates: start: 20240717
  56. PREDNISONE [Suspect]
     Active Substance: PREDNISONE
     Dosage: 100 MILLIGRAM
     Route: 048
     Dates: start: 20240718
  57. PREDNISONE [Suspect]
     Active Substance: PREDNISONE
     Dosage: 100 MILLIGRAM
     Route: 048
     Dates: start: 20240719
  58. PREDNISONE [Suspect]
     Active Substance: PREDNISONE
     Dosage: 100 MILLIGRAM
     Route: 048
     Dates: start: 20240720
  59. PREDNISONE [Suspect]
     Active Substance: PREDNISONE
     Dosage: 100 MILLIGRAM
     Route: 048
     Dates: start: 20240806
  60. PREDNISONE [Suspect]
     Active Substance: PREDNISONE
     Dosage: 100 MILLIGRAM
     Route: 048
     Dates: start: 20240807
  61. PREDNISONE [Suspect]
     Active Substance: PREDNISONE
     Dosage: 100 MILLIGRAM
     Route: 048
     Dates: start: 20240808
  62. PREDNISONE [Suspect]
     Active Substance: PREDNISONE
     Dosage: 100 MILLIGRAM
     Route: 048
     Dates: start: 20240809
  63. PREDNISONE [Suspect]
     Active Substance: PREDNISONE
     Dosage: 100 MILLIGRAM
     Route: 048
     Dates: start: 20240810
  64. PREDNISONE [Suspect]
     Active Substance: PREDNISONE
     Dosage: 100 MILLIGRAM
     Route: 048
     Dates: start: 20240828
  65. PREDNISONE [Suspect]
     Active Substance: PREDNISONE
     Dosage: 100 MILLIGRAM
     Route: 048
     Dates: start: 20240829
  66. PREDNISONE [Suspect]
     Active Substance: PREDNISONE
     Dosage: 100 MILLIGRAM
     Route: 048
     Dates: start: 20240831
  67. EPIRUBICIN [Suspect]
     Active Substance: EPIRUBICIN
     Indication: Angioimmunoblastic T-cell lymphoma
     Dosage: 80 MILLIGRAM/SQ. METER
     Route: 065
     Dates: start: 20240413, end: 20240413
  68. EPIRUBICIN [Suspect]
     Active Substance: EPIRUBICIN
     Dosage: 80 MILLIGRAM/SQ. METER
     Route: 042
     Dates: start: 20240513, end: 20240513
  69. EPIRUBICIN [Suspect]
     Active Substance: EPIRUBICIN
     Dosage: 80 MILLIGRAM/SQ. METER
     Route: 042
     Dates: start: 20240604, end: 20240604
  70. EPIRUBICIN [Suspect]
     Active Substance: EPIRUBICIN
     Dosage: 80 MILLIGRAM/SQ. METER
     Route: 042
     Dates: start: 20240624, end: 20240624
  71. EPIRUBICIN [Suspect]
     Active Substance: EPIRUBICIN
     Dosage: 80 MILLIGRAM/SQ. METER
     Route: 042
     Dates: start: 20240716, end: 20240716
  72. EPIRUBICIN [Suspect]
     Active Substance: EPIRUBICIN
     Dosage: 80 MILLIGRAM/SQ. METER
     Route: 042
     Dates: start: 20240806, end: 20240806
  73. ONCOVIN [Suspect]
     Active Substance: VINCRISTINE SULFATE
     Indication: Angioimmunoblastic T-cell lymphoma
     Dosage: 1.4 MILLIGRAM/SQ. METER
     Route: 065
     Dates: start: 20240413, end: 20240413
  74. ONCOVIN [Suspect]
     Active Substance: VINCRISTINE SULFATE
     Dosage: 1.4 MILLIGRAM/SQ. METER
     Route: 042
     Dates: start: 20240513, end: 20240513
  75. ONCOVIN [Suspect]
     Active Substance: VINCRISTINE SULFATE
     Dosage: 1.4 MILLIGRAM/SQ. METER
     Route: 042
     Dates: start: 20240604, end: 20240604
  76. ONCOVIN [Suspect]
     Active Substance: VINCRISTINE SULFATE
     Dosage: 1.4 MILLIGRAM/SQ. METER
     Route: 042
     Dates: start: 20240624, end: 20240624
  77. ONCOVIN [Suspect]
     Active Substance: VINCRISTINE SULFATE
     Dosage: 1.4 MILLIGRAM/SQ. METER
     Route: 042
     Dates: start: 20240716, end: 20240716
  78. ONCOVIN [Suspect]
     Active Substance: VINCRISTINE SULFATE
     Dosage: 1.4 MILLIGRAM/SQ. METER
     Route: 042
     Dates: start: 20240806, end: 20240806
  79. BELEODAQ [Concomitant]
     Active Substance: BELINOSTAT
     Indication: Product used for unknown indication
     Dosage: UNK
     Route: 065
  80. FOLOTYN [Concomitant]
     Active Substance: PRALATREXATE
     Indication: Product used for unknown indication
     Dosage: UNK
     Route: 065
  81. FOLVITE [Concomitant]
     Active Substance: FOLIC ACID
     Indication: Supportive care
     Dosage: 1 MILLIGRAM, DAILY
     Route: 048
     Dates: start: 20240423
  82. GLUCOPHAGE [Concomitant]
     Active Substance: METFORMIN HYDROCHLORIDE
     Indication: Hyperlipidaemia
     Dosage: 500 MILLIGRAM, ONCE A DAY
     Route: 048
     Dates: start: 20240417
  83. GLUCOPHAGE [Concomitant]
     Active Substance: METFORMIN HYDROCHLORIDE
     Indication: Hypertension
     Dosage: 500 MILLIGRAM, ONCE A DAY
     Route: 048
     Dates: start: 20240418
  84. GLUCOPHAGE [Concomitant]
     Active Substance: METFORMIN HYDROCHLORIDE
     Indication: T-cell lymphoma
  85. GLUCOPHAGE [Concomitant]
     Active Substance: METFORMIN HYDROCHLORIDE
     Indication: Type 2 diabetes mellitus
  86. LIPITOR [Concomitant]
     Active Substance: ATORVASTATIN CALCIUM
     Indication: Hyperlipidaemia
     Dosage: 40 MILLIGRAM, ONCE A DAY
     Route: 048
     Dates: start: 20240418
  87. LIPITOR [Concomitant]
     Active Substance: ATORVASTATIN CALCIUM
     Indication: Hypertension
  88. LIPITOR [Concomitant]
     Active Substance: ATORVASTATIN CALCIUM
     Indication: T-cell lymphoma
  89. LIPITOR [Concomitant]
     Active Substance: ATORVASTATIN CALCIUM
     Indication: Type 2 diabetes mellitus
  90. NORVASC [Concomitant]
     Active Substance: AMLODIPINE BESYLATE
     Indication: Hyperlipidaemia
     Dosage: 10 MILLIGRAM, ONCE A DAY
     Route: 048
     Dates: start: 20240417, end: 20240906
  91. NORVASC [Concomitant]
     Active Substance: AMLODIPINE BESYLATE
     Indication: Hypertension
     Dosage: 10 MILLIGRAM, ONCE A DAY
     Route: 048
     Dates: start: 20240419
  92. NORVASC [Concomitant]
     Active Substance: AMLODIPINE BESYLATE
     Indication: T-cell lymphoma
  93. NORVASC [Concomitant]
     Active Substance: AMLODIPINE BESYLATE
     Indication: Type 2 diabetes mellitus

REACTIONS (1)
  - Abdominal pain [Recovered/Resolved]

NARRATIVE: CASE EVENT DATE: 20240426
